FAERS Safety Report 4620421-1 (Version None)
Quarter: 2005Q1

REPORT INFORMATION
  Report Type: 
  Country: None (occurrence: None)
  Receive Date: 20050324
  Receipt Date: 20050311
  Transmission Date: 20050727
  Serious: Yes (Hospitalization)
  Sender: FDA-Public Use
  Company Number: HQWYE062711MAR05

PATIENT
  Age: 68 Year
  Sex: Female

DRUGS (12)
  1. PANTOZOL                         (PANTOPRAZOLE,  DELAYED RELEASE) [Suspect]
     Indication: DUODENITIS
     Dosage: 40 MG 1X PER 1 DAY ORAL
     Route: 048
     Dates: end: 20040101
  2. PANTOZOL                         (PANTOPRAZOLE,  DELAYED RELEASE) [Suspect]
     Indication: GASTRITIS
     Dosage: 40 MG 1X PER 1 DAY ORAL
     Route: 048
     Dates: end: 20040101
  3. AMLODIPINE [Suspect]
     Indication: ESSENTIAL HYPERTENSION
     Dosage: 5 MG 1X PER 1 DAY ORAL
     Route: 048
     Dates: end: 20040101
  4. CLOPIDOGREL BISULFATE [Suspect]
     Dosage: 75 MG 1X PER 1 DAY ORAL
     Route: 048
  5. ATORVASTATIN CALCIUM [Suspect]
     Indication: HYPERLIPIDAEMIA
     Dosage: 20 MG 1X PER 1 DAY ORAL
     Route: 048
     Dates: end: 20040101
  6. ASPIRIN [Concomitant]
  7. LEVOTHYROXINE SODIUM [Concomitant]
  8. ENALAPRIL MALEATE [Concomitant]
  9. ENALAPRIL MALEATE AND HYDROCHLOROTHIAZIDE [Concomitant]
  10. METOPROLOL TARTRATE [Concomitant]
  11. SIMVASTATIN [Concomitant]
  12. INSULIN [Concomitant]

REACTIONS (4)
  - ANTINUCLEAR ANTIBODY POSITIVE [None]
  - BLOOD GLUCOSE ABNORMAL [None]
  - FATIGUE [None]
  - HEPATIC ENZYME INCREASED [None]
